FAERS Safety Report 6738868-6 (Version None)
Quarter: 2010Q2

REPORT INFORMATION
  Report Type: 
  Country: None (occurrence: None)
  Receive Date: 20100520
  Receipt Date: 20100423
  Transmission Date: 20101027
  Serious: Yes (Other)
  Sender: FDA-Public Use
  Company Number: AUR-APL-2010-01252

PATIENT
  Sex: Male

DRUGS (7)
  1. PAROXETINE HCL [Suspect]
     Indication: ANXIETY
     Dosage: 20MG, DAILY,
     Dates: start: 20000626, end: 20000810
  2. PAROXETINE HCL [Suspect]
     Indication: DEPRESSION
     Dosage: 20MG, DAILY,
     Dates: start: 20000626, end: 20000810
  3. BENDROFLUAZIDE [Concomitant]
  4. MIRTAZAPINE [Concomitant]
  5. PROPRANOLOL [Concomitant]
  6. TRAZODONE HCL [Concomitant]
  7. ZOPICLONE [Concomitant]

REACTIONS (24)
  - ABNORMAL BEHAVIOUR [None]
  - ABNORMAL DREAMS [None]
  - AGGRESSION [None]
  - ANXIETY [None]
  - CONFUSIONAL STATE [None]
  - DECREASED EYE CONTACT [None]
  - DISTURBANCE IN ATTENTION [None]
  - FALL [None]
  - FEELING ABNORMAL [None]
  - HEAD INJURY [None]
  - HEADACHE [None]
  - HYPERVENTILATION [None]
  - MALAISE [None]
  - PHOTOPSIA [None]
  - POOR QUALITY SLEEP [None]
  - POVERTY OF THOUGHT CONTENT [None]
  - PSYCHIATRIC SYMPTOM [None]
  - PSYCHOTIC DISORDER [None]
  - SLEEP DISORDER [None]
  - SOMNOLENCE [None]
  - SPEECH DISORDER [None]
  - SUICIDAL IDEATION [None]
  - THINKING ABNORMAL [None]
  - UNEVALUABLE EVENT [None]
